FAERS Safety Report 7037793-3 (Version None)
Quarter: 2010Q4

REPORT INFORMATION
  Report Type: 
  Country: None (occurrence: None)
  Receive Date: 20101011
  Receipt Date: 20101004
  Transmission Date: 20110411
  Serious: Yes (Hospitalization)
  Sender: FDA-Public Use
  Company Number: US-WYE-H17969510

PATIENT
  Sex: Female

DRUGS (1)
  1. PRISTIQ [Suspect]
     Route: 048

REACTIONS (2)
  - NONSPECIFIC REACTION [None]
  - WRONG TECHNIQUE IN DRUG USAGE PROCESS [None]
